FAERS Safety Report 6946399-3 (Version None)
Quarter: 2010Q3

REPORT INFORMATION
  Report Type: 
  Country: None (occurrence: None)
  Receive Date: 20100827
  Receipt Date: 20100816
  Transmission Date: 20110219
  Serious: Yes (Hospitalization)
  Sender: FDA-Public Use
  Company Number: US-ELI_LILLY_AND_COMPANY-US201001000139

PATIENT
  Sex: Female

DRUGS (12)
  1. FORTEO [Suspect]
     Indication: OSTEOPOROSIS
     Dosage: 20 UG, DAILY (1/D)
     Dates: start: 20091001
  2. FORTEO [Suspect]
     Dosage: 20 UG, DAILY (1/D)
     Dates: end: 20100506
  3. FORTEO [Suspect]
     Dosage: 20 UG, QOD
  4. PRILOSEC [Concomitant]
  5. CELEBREX [Concomitant]
     Indication: ARTHRALGIA
  6. ASPIRIN [Concomitant]
     Dosage: 81 MG, UNK
  7. CALCIUM [Concomitant]
  8. VITAMIN D [Concomitant]
  9. GLUCOSAMINE CHONDROITIN [Concomitant]
  10. MULTI-VITAMIN [Concomitant]
  11. VITAMIN B COMPLEX CAP [Concomitant]
  12. FISH OIL [Concomitant]

REACTIONS (8)
  - BONE PAIN [None]
  - FEAR [None]
  - HIP ARTHROPLASTY [None]
  - HYPOAESTHESIA [None]
  - MUSCLE SPASMS [None]
  - MYALGIA [None]
  - NODULE ON EXTREMITY [None]
  - PAIN IN EXTREMITY [None]
